FAERS Safety Report 24879800 (Version 1)
Quarter: 2025Q1

REPORT INFORMATION
  Report Type: Spontaneous
  Country: CN (occurrence: CN)
  Receive Date: 20250123
  Receipt Date: 20250123
  Transmission Date: 20250408
  Serious: Yes (Hospitalization)
  Sender: PFIZER
  Company Number: CN-PFIZER INC-PV202500008417

PATIENT
  Age: 15 Year
  Sex: Female
  Weight: 93 kg

DRUGS (1)
  1. METHOTREXATE SODIUM [Suspect]
     Active Substance: METHOTREXATE SODIUM
     Indication: Peripheral T-cell lymphoma unspecified
     Dosage: 5.5 G, 1X/DAY
     Route: 041
     Dates: start: 20250103, end: 20250103

REACTIONS (5)
  - Liver injury [Recovering/Resolving]
  - Anal ulcer [Recovering/Resolving]
  - Mouth ulceration [Recovering/Resolving]
  - Intestinal ulcer [Recovering/Resolving]
  - Gastrointestinal ulcer [Recovering/Resolving]

NARRATIVE: CASE EVENT DATE: 20250106
